FAERS Safety Report 19849513 (Version 1)
Quarter: 2021Q3

REPORT INFORMATION
  Report Type: Spontaneous
  Country: US (occurrence: US)
  Receive Date: 20210918
  Receipt Date: 20210918
  Transmission Date: 20211014
  Serious: No
  Sender: FDA-Public Use
  Company Number: US-AMGEN INC.-USASP2021141672

PATIENT
  Age: 52 Year
  Sex: Female

DRUGS (1)
  1. AIMOVIG [Suspect]
     Active Substance: ERENUMAB-AOOE
     Indication: MIGRAINE PROPHYLAXIS
     Dosage: 70 MILLIGRAM, QMO
     Route: 065
     Dates: start: 20210909

REACTIONS (3)
  - Fatigue [Not Recovered/Not Resolved]
  - Paraesthesia oral [Recovered/Resolved]
  - Hypoaesthesia oral [Recovered/Resolved]

NARRATIVE: CASE EVENT DATE: 20210909
